FAERS Safety Report 7688610-X (Version None)
Quarter: 2011Q3

REPORT INFORMATION
  Report Type: 
  Country: None (occurrence: None)
  Receive Date: 20110817
  Receipt Date: 20110810
  Transmission Date: 20111222
  Serious: Yes (Disabling, Other)
  Sender: FDA-Public Use
  Company Number: GB-ALLERGAN-1110726US

PATIENT
  Age: 48 Year
  Sex: Female

DRUGS (4)
  1. BACLOFEN [Suspect]
     Indication: DYSTONIA
     Route: 048
  2. BENZODIAZEPINE DERIVATIVES [Suspect]
     Indication: DYSTONIA
  3. BOTULINUM TOXIN TYPE A [Suspect]
     Indication: DYSTONIA
     Dosage: UNK
  4. ANTICHOLINERGICS [Suspect]
     Indication: DYSTONIA

REACTIONS (3)
  - DISEASE PROGRESSION [None]
  - DRUG INEFFECTIVE [None]
  - PAIN IN EXTREMITY [None]
